FAERS Safety Report 16503294 (Version 1)
Quarter: 2019Q3

REPORT INFORMATION
  Report Type: Spontaneous
  Country: US (occurrence: US)
  Receive Date: 20190701
  Receipt Date: 20190701
  Transmission Date: 20191004
  Serious: No
  Sender: FDA-Public Use
  Company Number: US-GALDERMA-US19011856

PATIENT
  Age: 34 Year
  Sex: Female

DRUGS (6)
  1. PROACTIV MARK CORRECTING PADS [Concomitant]
     Active Substance: GLYCOLIC ACID\SALICYLIC ACID
     Indication: ACNE
     Route: 061
     Dates: start: 201806, end: 201811
  2. PROACTIV MD DEEP CLEANSING FACE WASH [Concomitant]
     Active Substance: COSMETICS
     Indication: ACNE
     Route: 061
     Dates: start: 201806, end: 201811
  3. PROACTIV SKIN CLEARING WATER GEL [Concomitant]
     Indication: ACNE
     Route: 061
     Dates: start: 201806, end: 201811
  4. MULTIVITAMINS [Concomitant]
     Active Substance: VITAMINS
  5. PROACTIV PLUS RETEXTURIZING TONER [Concomitant]
     Active Substance: SALICYLIC ACID
     Indication: ACNE
     Route: 061
     Dates: start: 201806, end: 201811
  6. PROACTIV MD ADAPALENE ACNE TREATMENT [Suspect]
     Active Substance: ADAPALENE
     Indication: ACNE
     Dosage: 0.1%
     Route: 061
     Dates: start: 201806, end: 201811

REACTIONS (3)
  - Swelling face [Recovered/Resolved]
  - Dermatitis [Recovered/Resolved]
  - Acne [Recovered/Resolved]

NARRATIVE: CASE EVENT DATE: 201806
